FAERS Safety Report 23365927 (Version 1)
Quarter: 2024Q1

REPORT INFORMATION
  Report Type: Spontaneous
  Country: US (occurrence: None)
  Receive Date: 20240103
  Receipt Date: 20240103
  Transmission Date: 20240409
  Serious: Yes (Other)
  Sender: FDA-Public Use
  Company Number: None

PATIENT
  Age: 65 Year
  Sex: Female
  Weight: 133.81 kg

DRUGS (8)
  1. CEPHALEXIN [Suspect]
     Active Substance: CEPHALEXIN
     Indication: Device related infection
     Dosage: OTHER FREQUENCY : 4 X DAYS 28 PILLS;?
     Route: 048
     Dates: start: 20231201, end: 20231201
  2. ISOSORBIDE MONO ER [Concomitant]
  3. CARVEDILOL [Concomitant]
     Active Substance: CARVEDILOL
  4. VASCEPA [Concomitant]
     Active Substance: ICOSAPENT ETHYL
  5. MOVOLOG FLEXPEN [Concomitant]
  6. LEVEFIR FLEX PEN [Concomitant]
  7. HYDRALAZINE [Concomitant]
     Active Substance: HYDRALAZINE HYDROCHLORIDE
  8. EZETIMBINE [Concomitant]

REACTIONS (3)
  - Abdominal pain upper [None]
  - Post procedural urine leak [None]
  - Nocturia [None]

NARRATIVE: CASE EVENT DATE: 20231201
